FAERS Safety Report 22304278 (Version 3)
Quarter: 2023Q4

REPORT INFORMATION
  Report Type: Spontaneous
  Country: CA (occurrence: CA)
  Receive Date: 20230510
  Receipt Date: 20231226
  Transmission Date: 20240110
  Serious: Yes (Hospitalization, Other)
  Sender: FDA-Public Use
  Company Number: CA-VELOXIS PHARMACEUTICALS, INC.-2023-VEL-00326

PATIENT
  Age: 54 Year
  Sex: Male

DRUGS (14)
  1. TACROLIMUS [Suspect]
     Active Substance: TACROLIMUS
     Indication: Renal transplant
     Dosage: PROLONGED RELEASE TABLET, 9 MILLIGRAM, QD
     Route: 048
     Dates: start: 20230419, end: 202305
  2. TACROLIMUS [Suspect]
     Active Substance: TACROLIMUS
     Dosage: PROLONGED RELEASE TABLET,10 MILLIGRAM, QD
     Route: 048
     Dates: start: 202305, end: 202305
  3. TACROLIMUS [Suspect]
     Active Substance: TACROLIMUS
     Dosage: PROLONGED RELEASE TABLET,11 MILLIGRAM, QD
     Route: 048
     Dates: start: 202305, end: 202305
  4. TACROLIMUS [Suspect]
     Active Substance: TACROLIMUS
     Dosage: PROLONGED RELEASE TABLET, 8 MILLIGRAM, QD
     Route: 048
     Dates: start: 202305, end: 202307
  5. TACROLIMUS [Suspect]
     Active Substance: TACROLIMUS
     Dosage: PROLONGED RELEASE TABLET, 6 MILLIGRAM, QD
     Route: 048
     Dates: start: 202307, end: 202309
  6. TACROLIMUS [Suspect]
     Active Substance: TACROLIMUS
     Dosage: PROLONGED RELEASE TABLET, 5.5 MILLIGRAM, QD
     Route: 048
     Dates: start: 202309
  7. PREDNISONE [Concomitant]
     Active Substance: PREDNISONE
     Indication: Product used for unknown indication
     Dosage: UNK
  8. RABEPRAZOLE [Concomitant]
     Active Substance: RABEPRAZOLE
     Indication: Product used for unknown indication
     Dosage: UNK
  9. SODIUM BICARBONATE [Concomitant]
     Active Substance: SODIUM BICARBONATE
     Indication: Product used for unknown indication
     Dosage: UNK
  10. VALACYCLOVIR [Concomitant]
     Active Substance: VALACYCLOVIR HYDROCHLORIDE
     Indication: Product used for unknown indication
     Dosage: UNK
  11. NORVASC [Concomitant]
     Active Substance: AMLODIPINE BESYLATE
     Indication: Product used for unknown indication
     Dosage: UNK
  12. IMURAN [Concomitant]
     Active Substance: AZATHIOPRINE
     Indication: Product used for unknown indication
     Dosage: UNK
  13. ACTONEL [Concomitant]
     Active Substance: RISEDRONATE SODIUM
     Indication: Product used for unknown indication
     Dosage: UNK
  14. SEPTRA [Concomitant]
     Active Substance: SULFAMETHOXAZOLE\TRIMETHOPRIM
     Indication: Product used for unknown indication
     Dosage: UNK

REACTIONS (7)
  - Transplant rejection [Unknown]
  - Feeling abnormal [Unknown]
  - Infection [Unknown]
  - Malaise [Unknown]
  - Unevaluable event [Unknown]
  - Blood creatinine increased [Unknown]
  - Urinary tract infection [Unknown]

NARRATIVE: CASE EVENT DATE: 20230101
